FAERS Safety Report 8097253-8 (Version None)
Quarter: 2012Q1

REPORT INFORMATION
  Report Type: 
  Country: None (occurrence: None)
  Receive Date: 20120128
  Receipt Date: 20110620
  Transmission Date: 20120608
  Serious: No
  Sender: FDA-Public Use
  Company Number: US-ABBOTT-11P-163-0733645-00

PATIENT
  Sex: Female
  Weight: 59.02 kg

DRUGS (1)
  1. HUMIRA [Suspect]
     Indication: CROHN'S DISEASE
     Route: 058
     Dates: start: 20100101

REACTIONS (5)
  - STOMATITIS [None]
  - ORAL MUCOSAL EXFOLIATION [None]
  - HYPOAESTHESIA [None]
  - PARAESTHESIA [None]
  - EAR PAIN [None]
